FAERS Safety Report 4601332-4 (Version None)
Quarter: 2005Q1

REPORT INFORMATION
  Report Type: 
  Country: None (occurrence: None)
  Receive Date: 20050308
  Receipt Date: 20041130
  Transmission Date: 20050727
  Serious: Yes (Hospitalization)
  Sender: FDA-Public Use
  Company Number: GB-BRISTOL-MYERS SQUIBB COMPANY-12779237

PATIENT
  Age: 65 Year
  Sex: Female

DRUGS (13)
  1. CARBOPLATIN [Suspect]
     Indication: OVARIAN CANCER
     Dosage: AUC6 OR AUC5EDTA
     Dates: start: 20041027, end: 20041027
  2. CARBOPLATIN [Suspect]
     Indication: PERITONEAL CARCINOMA
     Dosage: AUC6 OR AUC5EDTA
     Dates: start: 20041027, end: 20041027
  3. PACLITAXEL [Suspect]
     Indication: OVARIAN CANCER
  4. PACLITAXEL [Suspect]
     Indication: PERITONEAL CARCINOMA
  5. GEMCITABINE [Suspect]
     Indication: OVARIAN CANCER
     Route: 042
     Dates: start: 20041027, end: 20041027
  6. GEMCITABINE [Suspect]
     Indication: PERITONEAL CARCINOMA
     Route: 042
     Dates: start: 20041027, end: 20041027
  7. WARFARIN SODIUM [Concomitant]
  8. ATORVASTATIN [Concomitant]
  9. CITALOPRAM HYDROBROMIDE [Concomitant]
  10. POTASSIUM CHLORIDE [Concomitant]
  11. POTASSIUM CHLORIDE [Concomitant]
     Dosage: 2 DOSE FORM
  12. ATENOLOL [Concomitant]
  13. METOCLOPRAMIDE [Concomitant]

REACTIONS (6)
  - BODY TEMPERATURE INCREASED [None]
  - CIRCULATORY COLLAPSE [None]
  - NAUSEA [None]
  - NEUTROPENIA [None]
  - TOOTHACHE [None]
  - VOMITING [None]
